FAERS Safety Report 18156076 (Version 1)
Quarter: 2020Q3

REPORT INFORMATION
  Report Type: Other
  Country: GB (occurrence: GB)
  Receive Date: 20200817
  Receipt Date: 20200817
  Transmission Date: 20201103
  Serious: Yes (Other)
  Sender: FDA-Public Use
  Company Number: GB-LUPIN PHARMACEUTICALS INC.-2020-04636

PATIENT
  Age: 17 Year
  Sex: Male
  Weight: 105 kg

DRUGS (1)
  1. SERTRALINE HYDROCHLORIDE TABLETS [Suspect]
     Active Substance: SERTRALINE HYDROCHLORIDE
     Indication: DEPRESSION
     Dosage: 175 MILLIGRAM
     Route: 048
     Dates: start: 20171223

REACTIONS (4)
  - Dry eye [Recovering/Resolving]
  - Vision blurred [Not Recovered/Not Resolved]
  - Corneal neovascularisation [Not Recovered/Not Resolved]
  - Visual impairment [Recovering/Resolving]

NARRATIVE: CASE EVENT DATE: 20190723
